FAERS Safety Report 5389793-7 (Version None)
Quarter: 2007Q3

REPORT INFORMATION
  Report Type: 
  Country: None (occurrence: None)
  Receive Date: 20070713
  Receipt Date: 20070628
  Transmission Date: 20080115
  Serious: Yes (Other)
  Sender: FDA-Public Use
  Company Number: 2007US001589

PATIENT
  Age: 70 Year
  Sex: Male

DRUGS (1)
  1. AMBISOME [Suspect]
     Indication: BRONCHOPULMONARY ASPERGILLOSIS
     Dosage: 100 MG, UID/QD; IV DRIP
     Route: 041
     Dates: start: 20070327, end: 20070409

REACTIONS (5)
  - ASTHMA [None]
  - DRUG INEFFECTIVE [None]
  - HYPERCAPNIA [None]
  - HYPOKALAEMIA [None]
  - STUPOR [None]
